FAERS Safety Report 6028962-X (Version None)
Quarter: 2009Q1

REPORT INFORMATION
  Report Type: 
  Country: None (occurrence: None)
  Receive Date: 20090106
  Receipt Date: 20090106
  Transmission Date: 20090719
  Serious: Yes (Other)
  Sender: FDA-Public Use
  Company Number: PHHY2009KR00520

PATIENT
  Sex: Male

DRUGS (1)
  1. CAFERGOT [Suspect]

REACTIONS (2)
  - TACHYCARDIA [None]
  - XEROPHTHALMIA [None]
